FAERS Safety Report 15231933 (Version 1)
Quarter: 2018Q3

REPORT INFORMATION
  Report Type: Report from Study
  Country: CA (occurrence: CA)
  Receive Date: 20180802
  Receipt Date: 20180802
  Transmission Date: 20181010
  Serious: Yes (Other)
  Sender: FDA-Public Use
  Company Number: CA-TAKEDA-2018TUS023655

PATIENT
  Age: 71 Year
  Sex: Male

DRUGS (8)
  1. AMITRIPTYLINE [Concomitant]
     Active Substance: AMITRIPTYLINE
     Dosage: UNK, QD
  2. ZOPICLONE [Concomitant]
     Active Substance: ZOPICLONE
     Dosage: UNK, QD
  3. LOSEC [Concomitant]
     Active Substance: OMEPRAZOLE
     Dosage: 20 MG, BID
  4. VEDOLIZUMAB [Suspect]
     Active Substance: VEDOLIZUMAB
     Indication: CROHN^S DISEASE
     Dosage: 300 MG, UNK
     Route: 042
     Dates: start: 20160616
  5. TRYPTOPHAN                         /00215101/ [Concomitant]
     Active Substance: TRYPTOPHAN
     Dosage: UNK, QD
  6. TIAZAC [Concomitant]
     Active Substance: DILTIAZEM HYDROCHLORIDE
     Dosage: 180 MG, BID
  7. CODEINE CONTIN [Concomitant]
     Active Substance: CODEINE SULFATE
     Dosage: 50 MG, BID
  8. TRAZODONE [Concomitant]
     Active Substance: TRAZODONE HYDROCHLORIDE
     Dosage: 150 MG, QD

REACTIONS (1)
  - Lymphoma [Unknown]

NARRATIVE: CASE EVENT DATE: 201807
